FAERS Safety Report 10094915 (Version 1)
Quarter: 2014Q2

REPORT INFORMATION
  Report Type: Spontaneous
  Country: US (occurrence: US)
  Receive Date: 20140422
  Receipt Date: 20140422
  Transmission Date: 20141212
  Serious: No
  Sender: FDA-Public Use
  Company Number: US-BAUSCH-BL-2014-001231

PATIENT
  Age: 78 Year
  Sex: Female
  Weight: 65.38 kg

DRUGS (14)
  1. PROLENSA (BROMFENAC OPHTHALMIC SOLUTION) 0.07% [Suspect]
     Indication: CATARACT OPERATION
     Dosage: 1 DROP INTO THE LEFT EYE TWICE DAILY
     Route: 061
  2. TOBRAMYCIN OPHTHALMIC SOLUTION USP 0.3% [Suspect]
     Indication: CATARACT OPERATION
     Dosage: 1 DROP INTO THE LEFT EYE FOUR TIMES DAILY
     Route: 061
  3. PREDNISOLONE [Suspect]
     Indication: CATARACT OPERATION
     Dosage: 1 DROP INTO THE LEFT EYE FOUR TIMES DAILY
     Route: 061
  4. ATENOLOL [Concomitant]
     Indication: PRODUCT USED FOR UNKNOWN INDICATION
  5. LEVOTHYROXINE [Concomitant]
     Indication: PRODUCT USED FOR UNKNOWN INDICATION
  6. FUROSEMIDE [Concomitant]
     Indication: PRODUCT USED FOR UNKNOWN INDICATION
  7. CLOPIDOGREL [Concomitant]
     Indication: PRODUCT USED FOR UNKNOWN INDICATION
  8. ZYLOPRIM [Concomitant]
     Indication: PRODUCT USED FOR UNKNOWN INDICATION
  9. CRESTOR [Concomitant]
     Indication: PRODUCT USED FOR UNKNOWN INDICATION
  10. GABAPENTIN [Concomitant]
     Indication: PRODUCT USED FOR UNKNOWN INDICATION
  11. JANUVIA [Concomitant]
     Indication: PRODUCT USED FOR UNKNOWN INDICATION
  12. VITAMIN D3 [Concomitant]
     Indication: PRODUCT USED FOR UNKNOWN INDICATION
  13. CO Q10 [Concomitant]
     Indication: PRODUCT USED FOR UNKNOWN INDICATION
  14. VITAMIN B 50 COMPLEX [Concomitant]
     Indication: PRODUCT USED FOR UNKNOWN INDICATION

REACTIONS (3)
  - Nausea [Not Recovered/Not Resolved]
  - Diarrhoea [Not Recovered/Not Resolved]
  - Abdominal distension [Not Recovered/Not Resolved]
